FAERS Safety Report 4369254-4 (Version None)
Quarter: 2004Q2

REPORT INFORMATION
  Report Type: 
  Country: None (occurrence: None)
  Receive Date: 20040603
  Receipt Date: 20040212
  Transmission Date: 20050107
  Serious: No
  Sender: FDA-Public Use
  Company Number: US-GLAXOSMITHKLINE-A0497996A

PATIENT
  Age: 52 Year
  Sex: Female

DRUGS (4)
  1. AUGMENTIN [Suspect]
     Dosage: 2TAB TWICE PER DAY
     Route: 048
     Dates: start: 20040107
  2. CLARITIN [Concomitant]
  3. HYDROCHLOROTHIAZIDE [Concomitant]
  4. MULTIVITAMIN [Concomitant]

REACTIONS (1)
  - DYSPEPSIA [None]
